FAERS Safety Report 9657058 (Version 1)
Quarter: 2013Q4

REPORT INFORMATION
  Report Type: Spontaneous
  Country: US (occurrence: None)
  Receive Date: 20131029
  Receipt Date: 20131029
  Transmission Date: 20140711
  Serious: Yes (Hospitalization)
  Sender: FDA-Public Use
  Company Number: None

PATIENT
  Age: 50 Year
  Sex: Female
  Weight: 90.8 kg

DRUGS (13)
  1. HEPARIN [Suspect]
     Indication: PROPHYLAXIS
     Route: 058
     Dates: end: 20110716
  2. ACYCLOVIR [Concomitant]
  3. BUSPIRONE [Concomitant]
  4. CHLORHEXIDINE [Concomitant]
  5. FENTANYL [Concomitant]
  6. MEPERIDINE [Concomitant]
  7. OPTHALMIC OINTMENT [Concomitant]
  8. POTASSIUM CHLORIDE [Concomitant]
  9. RANITIDINE [Concomitant]
  10. SIMVASTATIN [Concomitant]
  11. THIAMINE [Concomitant]
  12. PROPOFOL [Concomitant]
  13. TEN [Concomitant]

REACTIONS (2)
  - Haemoglobin decreased [None]
  - Haemorrhage [None]
